FAERS Safety Report 8460304-2 (Version None)
Quarter: 2012Q2

REPORT INFORMATION
  Report Type: 
  Country: None (occurrence: None)
  Receive Date: 20120622
  Receipt Date: 20120613
  Transmission Date: 20120825
  Serious: Yes (Death, Hospitalization)
  Sender: FDA-Public Use
  Company Number: US-ACTELION-A-US2012-64642

PATIENT

DRUGS (3)
  1. ADCIRCA [Concomitant]
  2. LASIX [Concomitant]
  3. TRACLEER [Suspect]
     Indication: PULMONARY ARTERIAL HYPERTENSION
     Dosage: UNK
     Route: 048
     Dates: start: 20040817, end: 20120611

REACTIONS (4)
  - KIDNEY INFECTION [None]
  - DYSPNOEA [None]
  - CARDIAC FAILURE [None]
  - DEATH [None]
